FAERS Safety Report 20448569 (Version 2)
Quarter: 2022Q1

REPORT INFORMATION
  Report Type: Other
  Country: JP (occurrence: JP)
  Receive Date: 20220209
  Receipt Date: 20220218
  Transmission Date: 20220424
  Serious: Yes (Hospitalization, Other)
  Sender: FDA-Public Use
  Company Number: JP-GLAXOSMITHKLINE-JP2022JPN017046

PATIENT

DRUGS (6)
  1. PAROXETINE HYDROCHLORIDE [Suspect]
     Active Substance: PAROXETINE HYDROCHLORIDE
     Indication: Depression
     Dosage: UNK
     Route: 048
  2. NOREPINEPHRINE BITARTRATE [Suspect]
     Active Substance: NOREPINEPHRINE BITARTRATE
     Indication: Stress cardiomyopathy
     Dosage: UNK
     Route: 065
  3. LITHIUM CARBONATE [Concomitant]
     Active Substance: LITHIUM CARBONATE
     Indication: Depression
     Dosage: UNK
     Route: 048
  4. LITHIUM CARBONATE [Concomitant]
     Active Substance: LITHIUM CARBONATE
     Dosage: UNK
  5. TRAZODONE HYDROCHLORIDE [Concomitant]
     Active Substance: TRAZODONE HYDROCHLORIDE
     Indication: Depression
     Dosage: UNK
     Route: 048
  6. TRAZODONE HYDROCHLORIDE [Concomitant]
     Active Substance: TRAZODONE HYDROCHLORIDE
     Dosage: UNK

REACTIONS (9)
  - Mydriasis [Unknown]
  - Musculoskeletal stiffness [Unknown]
  - Sympathicotonia [Unknown]
  - Hyperhidrosis [Unknown]
  - Serotonin syndrome [Unknown]
  - Fall [Unknown]
  - Stress cardiomyopathy [Unknown]
  - Tachycardia [Recovering/Resolving]
  - Muscle tightness [Recovering/Resolving]
